FAERS Safety Report 6284062-5 (Version None)
Quarter: 2009Q3

REPORT INFORMATION
  Report Type: 
  Country: None (occurrence: None)
  Receive Date: 20090727
  Receipt Date: 20090714
  Transmission Date: 20100115
  Serious: Yes (Other)
  Sender: FDA-Public Use
  Company Number: IE-BAYER-200911945BNE

PATIENT
  Age: 27 Year
  Sex: Female

DRUGS (2)
  1. BETAFERON [Suspect]
     Indication: MULTIPLE SCLEROSIS
     Dosage: UNIT DOSE: 8 MIU
     Route: 058
     Dates: start: 20090301
  2. OCP [Concomitant]
     Indication: ORAL CONTRACEPTION
     Route: 048

REACTIONS (4)
  - ABDOMINAL PAIN UPPER [None]
  - DIARRHOEA [None]
  - GASTRITIS [None]
  - VOMITING [None]
